FAERS Safety Report 13004076 (Version 1)
Quarter: 2016Q4

REPORT INFORMATION
  Report Type: Spontaneous
  Country: US (occurrence: US)
  Receive Date: 20161206
  Receipt Date: 20161206
  Transmission Date: 20170207
  Serious: No
  Sender: FDA-Public Use
  Company Number: US-JAZZ-2016-US-018243

PATIENT
  Age: 45 Year
  Sex: Female
  Weight: 74 kg

DRUGS (16)
  1. AMBIEN [Concomitant]
     Active Substance: ZOLPIDEM TARTRATE
  2. BIOTIN [Concomitant]
     Active Substance: BIOTIN
  3. LYRICA [Concomitant]
     Active Substance: PREGABALIN
  4. SYNTHROID [Concomitant]
     Active Substance: LEVOTHYROXINE SODIUM
  5. TOPAMAX [Concomitant]
     Active Substance: TOPIRAMATE
  6. VITAMIN C [Concomitant]
     Active Substance: ASCORBIC ACID
  7. CLARITIN [Concomitant]
     Active Substance: LORATADINE
  8. XYREM [Suspect]
     Active Substance: SODIUM OXYBATE
     Indication: NARCOLEPSY
     Dosage: 2.25 G, BID
     Route: 048
     Dates: start: 20160914, end: 20160918
  9. MULTIVITAMIN AND MINERAL [Concomitant]
  10. VITAMIN D3 [Concomitant]
     Active Substance: CHOLECALCIFEROL
  11. CALCIUM + MAGNESIUM + ZINK [Concomitant]
  12. MAXALT [Concomitant]
     Active Substance: RIZATRIPTAN BENZOATE
  13. OMEPRAZOLE. [Concomitant]
     Active Substance: OMEPRAZOLE
  14. ESTRADIOL. [Concomitant]
     Active Substance: ESTRADIOL
  15. ALLERGY                            /00000402/ [Concomitant]
  16. OCUVITE LUTEIN + ZEAXANTHIN [Concomitant]

REACTIONS (2)
  - Rash papular [Recovered/Resolved]
  - Middle insomnia [Unknown]

NARRATIVE: CASE EVENT DATE: 20160915
